FAERS Safety Report 10983942 (Version 2)
Quarter: 2015Q2

REPORT INFORMATION
  Report Type: Spontaneous
  Country: US (occurrence: US)
  Receive Date: 20150403
  Receipt Date: 20150505
  Transmission Date: 20150821
  Serious: Yes (Other)
  Sender: FDA-Public Use
  Company Number: US-BRISTOL-MYERS SQUIBB COMPANY-BMS-2015-019437

PATIENT
  Age: 54 Year
  Sex: Male

DRUGS (1)
  1. SPRYCEL [Suspect]
     Active Substance: DASATINIB
     Indication: CHRONIC MYELOID LEUKAEMIA
     Dosage: 100 MG, QD
     Route: 048
     Dates: start: 20121205

REACTIONS (11)
  - Deafness [Unknown]
  - Memory impairment [Unknown]
  - Chills [Unknown]
  - Headache [Unknown]
  - Pain [Unknown]
  - Eczema [Unknown]
  - Asthenia [Unknown]
  - Pruritus [Unknown]
  - Ocular discomfort [Unknown]
  - Bone pain [Unknown]
  - Pyrexia [Unknown]

NARRATIVE: CASE EVENT DATE: 20150312
